FAERS Safety Report 9244110 (Version 1)
Quarter: 2013Q1

REPORT INFORMATION
  Report Type: Spontaneous
  Country: US (occurrence: None)
  Receive Date: 20121123
  Receipt Date: 20121123
  Transmission Date: 20140127
  Serious: No
  Sender: FDA-Public Use
  Company Number: 363571

PATIENT
  Age: 61 Year
  Sex: Male

DRUGS (3)
  1. VICTOZA (LIRAGLUTIDE) SOLUTION FOR INJECTION, 6MG/ML [Suspect]
     Indication: TYPE 2 DIABETES MELLITUS
     Route: 058
  2. GLIPIZIDE (GLIPIZIDE) [Suspect]
     Indication: TYPE 2 DIABETES MELLITUS
     Route: 048
  3. METFORMIN (METFORMIN) [Suspect]
     Indication: TYPE 2 DIABETES MELLITUS
     Route: 048

REACTIONS (1)
  - Blood glucose increased [None]
